FAERS Safety Report 4500235-3 (Version None)
Quarter: 2004Q4

REPORT INFORMATION
  Report Type: 
  Country: None (occurrence: None)
  Receive Date: 20041108
  Receipt Date: 20041026
  Transmission Date: 20050328
  Serious: Yes (Other)
  Sender: FDA-Public Use
  Company Number: HQWYE160328OCT04

PATIENT
  Age: 18 Month
  Sex: Male

DRUGS (1)
  1. REFACTO [Suspect]
     Indication: HAEMOPHILIA
     Dosage: 1000 IU ON DEMAND INTRAVENOUS
     Route: 042
     Dates: start: 20040101, end: 20040101

REACTIONS (1)
  - DRUG INEFFECTIVE [None]
